FAERS Safety Report 9740985 (Version 1)
Quarter: 2013Q4

REPORT INFORMATION
  Report Type: Spontaneous
  Country: US (occurrence: US)
  Receive Date: 20131209
  Receipt Date: 20131209
  Transmission Date: 20140711
  Serious: Yes (Death)
  Sender: FDA-Public Use
  Company Number: US-INCYTE CORPORATION-2013IN002937

PATIENT
  Age: 76 Year
  Sex: Male

DRUGS (8)
  1. JAKAFI [Suspect]
     Indication: MYELOFIBROSIS
     Dosage: 20 MG, BID
     Route: 048
     Dates: start: 20120126
  2. PRILOSEC                           /00661201/ [Concomitant]
  3. PREDNISONE [Concomitant]
  4. PAXIL                              /00830802/ [Concomitant]
  5. NOVOLOG [Concomitant]
  6. LANTUS [Concomitant]
  7. ANDRODERM [Concomitant]
  8. VITAMINS /90003601/ [Concomitant]

REACTIONS (1)
  - Death [Fatal]
